FAERS Safety Report 8111924-6 (Version None)
Quarter: 2012Q1

REPORT INFORMATION
  Report Type: 
  Country: None (occurrence: None)
  Receive Date: 20120203
  Receipt Date: 20110505
  Transmission Date: 20120608
  Serious: Yes (Hospitalization)
  Sender: FDA-Public Use
  Company Number: US-GLAXOSMITHKLINE-A0926152A

PATIENT
  Age: 67 Year
  Sex: Female

DRUGS (9)
  1. NEURONTIN [Concomitant]
  2. ATIVAN [Concomitant]
  3. COLACE [Concomitant]
  4. LASIX [Concomitant]
  5. THYROID [Concomitant]
  6. ASPIRIN [Concomitant]
  7. ARIXTRA [Suspect]
     Indication: THROMBOSIS
     Dosage: 7.5MG PER DAY
     Route: 058
     Dates: end: 20110401
  8. TRAZODONE HCL [Concomitant]
  9. ONDANSETRON HCL [Concomitant]

REACTIONS (2)
  - LABORATORY TEST ABNORMAL [None]
  - GASTROINTESTINAL HAEMORRHAGE [None]
